FAERS Safety Report 15861281 (Version 1)
Quarter: 2019Q1

REPORT INFORMATION
  Report Type: Spontaneous
  Country: ES (occurrence: ES)
  Receive Date: 20190124
  Receipt Date: 20190124
  Transmission Date: 20190417
  Serious: Yes (Death)
  Sender: FDA-Public Use
  Company Number: ES-CELLTRION INC.-2019ES018208

PATIENT

DRUGS (1)
  1. RITUXIMAB (UNKNOWN) [Suspect]
     Active Substance: RITUXIMAB
     Indication: IMMUNOGLOBULIN G4 RELATED DISEASE
     Dosage: TWO DOSES OF 1000 MG ADMINISTERED 15 DAYS APART
     Route: 065

REACTIONS (4)
  - Septic shock [Fatal]
  - Multiple organ dysfunction syndrome [Fatal]
  - Product use in unapproved indication [Unknown]
  - Biliary cirrhosis [Unknown]
